FAERS Safety Report 18179736 (Version 1)
Quarter: 2020Q3

REPORT INFORMATION
  Report Type: Spontaneous
  Country: IT (occurrence: IT)
  Receive Date: 20200820
  Receipt Date: 20200820
  Transmission Date: 20201103
  Serious: Yes (Other)
  Sender: FDA-Public Use
  Company Number: IT-BAUSCH-BL-2020-023923

PATIENT
  Age: 74 Year
  Sex: Female

DRUGS (2)
  1. NORMIX [Suspect]
     Active Substance: RIFAXIMIN
     Indication: DIVERTICULITIS
     Route: 048
  2. LOSAPREX [Concomitant]
     Active Substance: LOSARTAN POTASSIUM
     Indication: HYPERTENSION

REACTIONS (1)
  - Atrial fibrillation [Recovered/Resolved]

NARRATIVE: CASE EVENT DATE: 20200730
